FAERS Safety Report 6290686-1 (Version None)
Quarter: 2009Q3

REPORT INFORMATION
  Report Type: 
  Country: None (occurrence: None)
  Receive Date: 20090730
  Receipt Date: 20090723
  Transmission Date: 20100115
  Serious: Yes (Disabling)
  Sender: FDA-Public Use
  Company Number: AU-WYE-G04118209

PATIENT
  Age: 25 Year
  Sex: Male

DRUGS (3)
  1. EFFEXOR XR [Suspect]
     Indication: MENTAL DISORDER
     Dosage: 75MG DAILY
     Route: 048
  2. EFFEXOR XR [Suspect]
     Dosage: 37.5MG DAILY
     Route: 048
  3. EFFEXOR XR [Suspect]
     Dosage: HALF A 37.5MG TABLET
     Route: 048

REACTIONS (7)
  - ABDOMINAL SYMPTOM [None]
  - CONDITION AGGRAVATED [None]
  - DRUG WITHDRAWAL SYNDROME [None]
  - INTENTIONAL DRUG MISUSE [None]
  - MENTAL DISORDER [None]
  - MUSCULOSKELETAL STIFFNESS [None]
  - UNEVALUABLE EVENT [None]
